FAERS Safety Report 4648171-6 (Version None)
Quarter: 2005Q2

REPORT INFORMATION
  Report Type: 
  Country: None (occurrence: None)
  Receive Date: 20050313
  Receipt Date: 20050204
  Transmission Date: 20051028
  Serious: No
  Sender: FDA-Public Use
  Company Number: 05P-163-0289757-00

PATIENT
  Age: 54 Year
  Sex: Female
  Weight: 61.2356 kg

DRUGS (12)
  1. HUMIRA [Suspect]
     Indication: RHEUMATOID ARTHRITIS
     Dosage: 40 MG, 1 IN 2 WK, SUBCUTANEOUS
     Route: 058
     Dates: start: 20041011, end: 20050124
  2. ISONIAZID [Concomitant]
  3. THIAMINE HCL [Concomitant]
  4. ATORVASTATIN [Concomitant]
  5. ISOSORBIDE MONONITRATE [Concomitant]
  6. FOLIC ACID [Concomitant]
  7. METOPROLOL TARTRATE [Concomitant]
  8. FUROSEMIDE [Concomitant]
  9. POTASSIUM CHLORIDE [Concomitant]
  10. ACETYL SALICYLIC ACID USP BAT [Concomitant]
  11. VICODIN [Concomitant]
  12. NAPROXEN SODIUM [Concomitant]

REACTIONS (1)
  - CELLULITIS [None]
